FAERS Safety Report 19020461 (Version 1)
Quarter: 2021Q1

REPORT INFORMATION
  Report Type: Spontaneous
  Country: US (occurrence: US)
  Receive Date: 20210317
  Receipt Date: 20210317
  Transmission Date: 20210420
  Serious: Yes (Other)
  Sender: FDA-Public Use
  Company Number: US-MYLANLABS-2021M1015979

PATIENT
  Age: 14 Year
  Sex: Male

DRUGS (2)
  1. FLUOROURACIL. [Suspect]
     Active Substance: FLUOROURACIL
     Indication: HEPATOCELLULAR CARCINOMA
     Dosage: FOR ONE WEEK, REPEATED....
     Route: 065
  2. INTERFERON [Suspect]
     Active Substance: INTERFERON
     Indication: HEPATOCELLULAR CARCINOMA
     Dosage: FOR ONE WEEK, REPEATED...
     Route: 065

REACTIONS (2)
  - Treatment failure [Unknown]
  - Off label use [Unknown]
